FAERS Safety Report 10438020 (Version 1)
Quarter: 2014Q3

REPORT INFORMATION
  Report Type: Spontaneous
  Country: AR (occurrence: None)
  Receive Date: 20140904
  Receipt Date: 20140904
  Transmission Date: 20150326
  Serious: Yes (Other)
  Sender: FDA-Public Use
  Company Number: VAL_03354_2014

PATIENT
  Age: 37 Year
  Sex: Female

DRUGS (1)
  1. METHYLERGOMETRINE MALEATE (BASOFORTINA -METHYLERGOMETRINE MALEATE) [Suspect]
     Active Substance: METHYLERGONOVINE MALEATE
     Indication: LEIOMYOMA

REACTIONS (2)
  - Maternal exposure during pregnancy [None]
  - Premature baby [None]
